FAERS Safety Report 17930773 (Version 1)
Quarter: 2020Q2

REPORT INFORMATION
  Report Type: Spontaneous
  Country: ES (occurrence: ES)
  Receive Date: 20200623
  Receipt Date: 20200623
  Transmission Date: 20200714
  Serious: Yes (Hospitalization)
  Sender: FDA-Public Use
  Company Number: ES-ROCHE-2621983

PATIENT
  Age: 65 Year
  Sex: Male

DRUGS (4)
  1. CLEXANE [Suspect]
     Active Substance: ENOXAPARIN SODIUM
     Indication: COVID-19 PNEUMONIA
     Route: 058
     Dates: start: 20200510
  2. CLEXANE [Suspect]
     Active Substance: ENOXAPARIN SODIUM
     Indication: PULMONARY EMBOLISM
  3. ACTILYSE [Suspect]
     Active Substance: ALTEPLASE
     Indication: PULMONARY EMBOLISM
     Dosage: 10MG BOLUS AND 90MG DURING 2 HOURS
     Route: 040
     Dates: start: 20200510, end: 20200510
  4. ACTILYSE [Suspect]
     Active Substance: ALTEPLASE
     Indication: COVID-19 PNEUMONIA

REACTIONS (3)
  - Anaemia [Recovering/Resolving]
  - Product use in unapproved indication [Unknown]
  - Off label use [Unknown]
